FAERS Safety Report 7355824-8 (Version None)
Quarter: 2011Q1

REPORT INFORMATION
  Report Type: 
  Country: None (occurrence: None)
  Receive Date: 20110316
  Receipt Date: 20110311
  Transmission Date: 20110831
  Serious: Yes (Other)
  Sender: FDA-Public Use
  Company Number: GB-B.I. PHARMACEUTICALS,INC./RIDGEFIELD-2011-UK-00271UK

PATIENT
  Sex: Female

DRUGS (4)
  1. RANITIDINE [Concomitant]
  2. PERSANTIN [Suspect]
     Indication: CEREBROVASCULAR ACCIDENT PROPHYLAXIS
     Dosage: 2 ANZ
     Route: 048
     Dates: start: 20101101
  3. ASPIRIN [Concomitant]
  4. MEDICATION NOT FURTHER SPECIFIED [Concomitant]
     Indication: ATRIAL FIBRILLATION

REACTIONS (4)
  - ANAEMIA [None]
  - PALLOR [None]
  - HAEMORRHAGE [None]
  - FATIGUE [None]
